FAERS Safety Report 10722369 (Version 1)
Quarter: 2015Q1

REPORT INFORMATION
  Report Type: Report from Study
  Country: IL (occurrence: IL)
  Receive Date: 20150119
  Receipt Date: 20150119
  Transmission Date: 20150721
  Serious: Yes (Hospitalization)
  Sender: FDA-Public Use
  Company Number: IL-ABBVIE-13P-082-1143727-00

PATIENT
  Age: 65 Year
  Sex: Male

DRUGS (3)
  1. UNKNOWN PROSTATE MEDICATION [Suspect]
     Active Substance: UNSPECIFIED INGREDIENT
     Indication: PROSTATIC DISORDER
     Route: 065
  2. DUODOPA [Suspect]
     Active Substance: CARBIDOPA\LEVODOPA
     Indication: PARKINSON^S DISEASE
     Route: 050
  3. ANTI-PSYCHOTIC MEDICATIONS [Concomitant]
     Indication: MENTAL DISORDER

REACTIONS (7)
  - Urinary retention [Unknown]
  - Oliguria [Unknown]
  - Blood urine present [Unknown]
  - Adverse drug reaction [Unknown]
  - Prostatic disorder [Unknown]
  - Gastrointestinal inflammation [Unknown]
  - Abdominal pain [Unknown]

NARRATIVE: CASE EVENT DATE: 20130830
